FAERS Safety Report 22281898 (Version 4)
Quarter: 2023Q2

REPORT INFORMATION
  Report Type: Spontaneous
  Country: US (occurrence: US)
  Receive Date: 20230504
  Receipt Date: 20230626
  Transmission Date: 20230721
  Serious: Yes (Hospitalization, Other)
  Sender: FDA-Public Use
  Company Number: US-BoehringerIngelheim-2023-BI-234532

PATIENT
  Age: 79 Year
  Sex: Male

DRUGS (1)
  1. JARDIANCE [Suspect]
     Active Substance: EMPAGLIFLOZIN
     Indication: Product used for unknown indication

REACTIONS (6)
  - Cerebrovascular accident [Unknown]
  - Prostatic operation [Unknown]
  - Post procedural complication [Unknown]
  - Catheter site haemorrhage [Unknown]
  - Catheter placement [Unknown]
  - Gastric neoplasm [Unknown]

NARRATIVE: CASE EVENT DATE: 20210101
